FAERS Safety Report 24441045 (Version 2)
Quarter: 2024Q4

REPORT INFORMATION
  Report Type: Report from Study
  Country: AU (occurrence: AU)
  Receive Date: 20241016
  Receipt Date: 20241017
  Transmission Date: 20250115
  Serious: No
  Sender: ROCHE
  Company Number: AU-ROCHE-3469523

PATIENT
  Sex: Male
  Weight: 72.0 kg

DRUGS (2)
  1. HEMLIBRA [Suspect]
     Active Substance: EMICIZUMAB-KXWH
     Indication: Haemophilia
     Dosage: 105MG/0.7ML VL
     Route: 058
  2. RETRIEVE [Concomitant]

REACTIONS (1)
  - Weight increased [Unknown]
